FAERS Safety Report 6562733-0 (Version None)
Quarter: 2010Q1

REPORT INFORMATION
  Report Type: 
  Country: None (occurrence: None)
  Receive Date: 20100130
  Receipt Date: 20091203
  Transmission Date: 20100710
  Serious: Yes (Hospitalization)
  Sender: FDA-Public Use
  Company Number: US-ABBOTT-09P-163-0608948-00

PATIENT
  Sex: Female

DRUGS (2)
  1. HUMIRA [Suspect]
     Indication: RHEUMATOID ARTHRITIS
     Route: 058
     Dates: start: 20090501, end: 20090901
  2. HUMIRA [Suspect]
     Route: 058
     Dates: start: 20091101

REACTIONS (9)
  - BLOOD URINE PRESENT [None]
  - CYSTITIS [None]
  - DIABETES MELLITUS [None]
  - DYSURIA [None]
  - FUNGAL INFECTION [None]
  - LACRIMATION INCREASED [None]
  - PNEUMONIA [None]
  - RHINORRHOEA [None]
  - URINARY TRACT INFECTION [None]
